FAERS Safety Report 20130873 (Version 1)
Quarter: 2021Q4

REPORT INFORMATION
  Report Type: Spontaneous
  Country: US (occurrence: None)
  Receive Date: 20211129
  Receipt Date: 20211129
  Transmission Date: 20220303
  Serious: No
  Sender: FDA-Public Use
  Company Number: None

PATIENT
  Age: 11 Year

DRUGS (2)
  1. ADVAIR DISKUS [Suspect]
     Active Substance: FLUTICASONE PROPIONATE\SALMETEROL XINAFOATE
     Indication: Product used for unknown indication
  2. ADVAIR HFA [Suspect]
     Active Substance: FLUTICASONE PROPIONATE\SALMETEROL XINAFOATE
     Indication: Product used for unknown indication

REACTIONS (9)
  - Product dispensing error [None]
  - Product dispensing error [None]
  - Device dispensing error [None]
  - Product prescribing error [None]
  - Transcription medication error [None]
  - Wrong device used [None]
  - Incorrect dose administered [None]
  - Product administration error [None]
  - Wrong dosage form [None]
